FAERS Safety Report 10539822 (Version 3)
Quarter: 2014Q4

REPORT INFORMATION
  Report Type: Report from Study
  Country: US (occurrence: US)
  Receive Date: 20141024
  Receipt Date: 20141230
  Transmission Date: 20150529
  Serious: Yes (Hospitalization, Other)
  Sender: FDA-Public Use
  Company Number: US-BIOGENIDEC-2014BI107742

PATIENT
  Age: 58 Year
  Sex: Female

DRUGS (2)
  1. AVONEX [Suspect]
     Active Substance: INTERFERON BETA-1A
     Indication: MULTIPLE SCLEROSIS
     Route: 030
     Dates: start: 20140401, end: 20140630
  2. AVONEX [Suspect]
     Active Substance: INTERFERON BETA-1A
     Indication: MULTIPLE SCLEROSIS
     Route: 030

REACTIONS (12)
  - Contrast media reaction [Recovered/Resolved]
  - Multiple sclerosis relapse [Recovered/Resolved]
  - Memory impairment [Not Recovered/Not Resolved]
  - Drug ineffective [Recovered/Resolved]
  - Mental impairment [Recovered/Resolved]
  - Heart rate irregular [Not Recovered/Not Resolved]
  - Muscle spasms [Recovered/Resolved with Sequelae]
  - Liver function test abnormal [Recovered/Resolved]
  - Eyelid ptosis [Recovered/Resolved]
  - Coronary artery disease [Not Recovered/Not Resolved]
  - Muscle atrophy [Recovered/Resolved]
  - Multiple sclerosis [Recovered/Resolved]

NARRATIVE: CASE EVENT DATE: 2014
